FAERS Safety Report 10020576 (Version 1)
Quarter: 2014Q1

REPORT INFORMATION
  Report Type: Report from Study
  Country: CA (occurrence: CA)
  Receive Date: 20140319
  Receipt Date: 20140319
  Transmission Date: 20141002
  Serious: Yes (Other)
  Sender: FDA-Public Use
  Company Number: PHHY2014CA032786

PATIENT
  Sex: Female

DRUGS (3)
  1. ACLASTA [Suspect]
     Indication: OSTEOPOROSIS
     Dosage: UNK
     Route: 042
     Dates: start: 20110223
  2. ACLASTA [Suspect]
     Dosage: UNK
     Route: 042
     Dates: start: 20120229
  3. ACLASTA [Suspect]
     Dosage: UNK
     Route: 042
     Dates: start: 20130319

REACTIONS (1)
  - Clostridium difficile infection [Unknown]
